FAERS Safety Report 24260533 (Version 1)
Quarter: 2024Q3

REPORT INFORMATION
  Report Type: Spontaneous
  Country: GB (occurrence: GB)
  Receive Date: 20240828
  Receipt Date: 20240828
  Transmission Date: 20241017
  Serious: Yes (Other)
  Sender: MYLAN
  Company Number: GB-SUN PHARMACEUTICAL INDUSTRIES LTD-2024RR-432520

PATIENT
  Age: 75 Year
  Sex: Female

DRUGS (3)
  1. ZOLEDRONIC ACID [Suspect]
     Active Substance: ZOLEDRONIC ACID
     Indication: Product used for unknown indication
     Dosage: UNK (ZOLEDRONIC 5 MG INJECTION)
     Route: 065
     Dates: start: 20230619
  2. ZOLEDRONIC ACID [Suspect]
     Active Substance: ZOLEDRONIC ACID
     Dosage: UNK (ZOLEDRONIC 5 MG INJECTION)
     Route: 065
     Dates: start: 20231219
  3. ZOLEDRONIC ACID [Suspect]
     Active Substance: ZOLEDRONIC ACID
     Dosage: UNK (DURING 2016, 2017 AND 2018, THREE INFUSIONS)
     Route: 065

REACTIONS (10)
  - Agitation [Unknown]
  - Alopecia [Unknown]
  - Visual impairment [Unknown]
  - Confusional state [Unknown]
  - Dizziness [Unknown]
  - Asthenia [Unknown]
  - Dental discomfort [Unknown]
  - Fracture [Unknown]
  - Myalgia [Unknown]
  - Arthralgia [Unknown]
